FAERS Safety Report 8231344-3 (Version None)
Quarter: 2012Q1

REPORT INFORMATION
  Report Type: 
  Country: None (occurrence: None)
  Receive Date: 20120323
  Receipt Date: 20120320
  Transmission Date: 20120608
  Serious: Yes (Hospitalization, Other)
  Sender: FDA-Public Use
  Company Number: US-PFIZER INC-2011146503

PATIENT
  Sex: Male
  Weight: 113 kg

DRUGS (8)
  1. METOPROLOL [Concomitant]
     Indication: CARDIAC DISORDER
     Dosage: 25 MG, 2X/DAY
  2. LISINOPRIL [Suspect]
     Indication: HYPERTENSION
     Dosage: 20 MG, DAILY
  3. AMIODARONE [Concomitant]
     Indication: CARDIAC DISORDER
     Dosage: 200 MG, DAILY
  4. LIPITOR [Suspect]
     Indication: BLOOD CHOLESTEROL INCREASED
     Dosage: 20 MG, DAILY
  5. IMDUR [Concomitant]
     Indication: CARDIAC DISORDER
     Dosage: 20 MG, DAILY
  6. ZOLOFT [Suspect]
     Indication: DEPRESSION
     Dosage: 100 MG, DAILY
  7. VISTARIL [Suspect]
     Indication: DEPRESSION
     Dosage: 25 MG, 2X/DAY
  8. VISTARIL [Suspect]
     Indication: ANXIETY

REACTIONS (5)
  - CORONARY ARTERY OCCLUSION [None]
  - ANXIETY [None]
  - INTERMITTENT EXPLOSIVE DISORDER [None]
  - DEPRESSION [None]
  - PRURITUS [None]
